FAERS Safety Report 17238901 (Version 1)
Quarter: 2020Q1

REPORT INFORMATION
  Report Type: Spontaneous
  Country: US (occurrence: US)
  Receive Date: 20200106
  Receipt Date: 20200106
  Transmission Date: 20200409
  Serious: No
  Sender: FDA-Public Use
  Company Number: US-SA-2020SA001788

PATIENT
  Age: 25 Year
  Sex: Male

DRUGS (4)
  1. AZELASTINE. [Concomitant]
     Active Substance: AZELASTINE HYDROCHLORIDE
  2. DUPIXENT [Suspect]
     Active Substance: DUPILUMAB
     Indication: DERMATITIS ATOPIC
     Dosage: 600 MG, 1X
     Route: 058
     Dates: start: 20191218
  3. DUPIXENT [Suspect]
     Active Substance: DUPILUMAB
     Dosage: UNK, QOW
     Route: 058
  4. FLUTICANOSE [Concomitant]
     Active Substance: FLUTICASONE PROPIONATE

REACTIONS (6)
  - Dermatitis atopic [Not Recovered/Not Resolved]
  - Sensitive skin [Not Recovered/Not Resolved]
  - Bacterial infection [Not Recovered/Not Resolved]
  - Lymphadenopathy [Not Recovered/Not Resolved]
  - Swelling [Not Recovered/Not Resolved]
  - Erythema [Not Recovered/Not Resolved]
